FAERS Safety Report 16921148 (Version 1)
Quarter: 2019Q4

REPORT INFORMATION
  Report Type: Spontaneous
  Country: IN (occurrence: IN)
  Receive Date: 20191015
  Receipt Date: 20191015
  Transmission Date: 20200122
  Serious: Yes (Hospitalization)
  Sender: FDA-Public Use
  Company Number: IN-JUBILANT CADISTA PHARMACEUTICALS-2019JUB00373

PATIENT
  Age: 25 Year
  Sex: Male

DRUGS (3)
  1. FLUPHENAZINE DECONATE [Concomitant]
     Dosage: 12.5 MG, ONCE
     Route: 065
  2. OLANZAPINE. [Suspect]
     Active Substance: OLANZAPINE
     Dosage: TITRATED TO 15 MG 1X/DAY OVER 14 DAYS
     Route: 048
  3. OLANZAPINE. [Suspect]
     Active Substance: OLANZAPINE
     Indication: SCHIZOPHRENIA
     Dosage: 5 MG, 1X/DAY
     Route: 048

REACTIONS (1)
  - Pancreatitis necrotising [Recovered/Resolved]
